FAERS Safety Report 5931509-7 (Version None)
Quarter: 2008Q4

REPORT INFORMATION
  Report Type: 
  Country: None (occurrence: None)
  Receive Date: 20081027
  Receipt Date: 20081020
  Transmission Date: 20090506
  Serious: Yes (Hospitalization)
  Sender: FDA-Public Use
  Company Number: A0753107A

PATIENT
  Age: 3 Year
  Sex: Male

DRUGS (2)
  1. AMOXIL [Suspect]
     Indication: INFECTION
     Dosage: 5ML THREE TIMES PER DAY
     Route: 048
     Dates: start: 20081004, end: 20081014
  2. ANTIBIOTIC [Suspect]
     Dosage: 5ML TWICE PER DAY
     Route: 048

REACTIONS (6)
  - ASTHENIA [None]
  - CAPILLARY FRAGILITY [None]
  - CONTUSION [None]
  - PRURITUS [None]
  - PYREXIA [None]
  - RASH GENERALISED [None]
